FAERS Safety Report 14007195 (Version 2)
Quarter: 2017Q4

REPORT INFORMATION
  Report Type: Spontaneous
  Country: US (occurrence: US)
  Receive Date: 20170925
  Receipt Date: 20171212
  Transmission Date: 20180321
  Serious: Yes (Other)
  Sender: FDA-Public Use
  Company Number: US-AMGEN-USASP2017143144

PATIENT
  Age: 61 Year
  Sex: Female

DRUGS (6)
  1. ENBREL [Suspect]
     Active Substance: ETANERCEPT
     Indication: RHEUMATOID ARTHRITIS
     Dosage: UNK
     Route: 065
  2. GLUCAMIDE [Concomitant]
     Indication: DIABETES MELLITUS
     Dosage: UNK
  3. PLAQUENIL [Concomitant]
     Active Substance: HYDROXYCHLOROQUINE SULFATE
     Indication: RHEUMATOID ARTHRITIS
  4. REMICADE [Concomitant]
     Active Substance: INFLIXIMAB
     Indication: RHEUMATOID ARTHRITIS
     Dosage: UNK
  5. AMARYL [Concomitant]
     Active Substance: GLIMEPIRIDE
     Indication: DIABETES MELLITUS
     Dosage: UNK
  6. ENBREL [Suspect]
     Active Substance: ETANERCEPT
     Dosage: 50 MG, QWK
     Route: 065
     Dates: start: 201707

REACTIONS (11)
  - Wrong technique in product usage process [Unknown]
  - Migraine [Unknown]
  - Immobile [Unknown]
  - Multiple allergies [Unknown]
  - Blood glucose increased [Unknown]
  - Foot operation [Unknown]
  - Depression [Unknown]
  - Anxiety [Unknown]
  - Rheumatoid arthritis [Unknown]
  - Stress at work [Unknown]
  - Dry mouth [Unknown]

NARRATIVE: CASE EVENT DATE: 201609
